FAERS Safety Report 9892042 (Version 2)
Quarter: 2014Q2

REPORT INFORMATION
  Report Type: Spontaneous
  Country: US (occurrence: US)
  Receive Date: 20140212
  Receipt Date: 20140512
  Transmission Date: 20141212
  Serious: Yes (Hospitalization)
  Sender: FDA-Public Use
  Company Number: US-GLAXOSMITHKLINE-A1053128A

PATIENT
  Age: 49 Year
  Sex: Female

DRUGS (2)
  1. ADVAIR HFA [Suspect]
     Indication: DYSPNOEA
     Route: 065
     Dates: start: 20110923
  2. VENTOLIN HFA [Suspect]
     Indication: DYSPNOEA
     Dosage: 90MCG UNKNOWN
     Route: 065
     Dates: start: 20110902

REACTIONS (3)
  - Investigation [Not Recovered/Not Resolved]
  - Limb operation [Unknown]
  - Wheelchair user [Not Recovered/Not Resolved]
